FAERS Safety Report 26122711 (Version 1)
Quarter: 2025Q4

REPORT INFORMATION
  Report Type: Spontaneous
  Country: US (occurrence: US)
  Receive Date: 20251204
  Receipt Date: 20251204
  Transmission Date: 20260118
  Serious: No
  Sender: BRISTOL-MYERS SQUIBB COMPANY
  Company Number: US-BRISTOL-MYERS SQUIBB COMPANY-2025-163352

PATIENT

DRUGS (1)
  1. ORENCIA [Suspect]
     Active Substance: ABATACEPT
     Indication: Product used for unknown indication
     Dosage: CODE UNIT: 125 MG/ML
     Route: 058
     Dates: start: 20251114

REACTIONS (3)
  - Rash [Unknown]
  - Arthralgia [Unknown]
  - Incontinence [Unknown]

NARRATIVE: CASE EVENT DATE: 20251101
